FAERS Safety Report 18109208 (Version 1)
Quarter: 2020Q3

REPORT INFORMATION
  Report Type: Spontaneous
  Country: US (occurrence: US)
  Receive Date: 20200804
  Receipt Date: 20200804
  Transmission Date: 20201103
  Serious: No
  Sender: FDA-Public Use
  Company Number: None

PATIENT
  Age: 49 Year
  Sex: Female
  Weight: 55.35 kg

DRUGS (6)
  1. DIAMOX SEQUELS [Concomitant]
     Active Substance: ACETAZOLAMIDE
  2. MULTIVITAMIN [Concomitant]
     Active Substance: VITAMINS
  3. ACCOLATE [Concomitant]
     Active Substance: ZAFIRLUKAST
  4. CROMOLYN SODIUM ORAL SOLUTION (CONCENTRATE) [Suspect]
     Active Substance: CROMOLYN SODIUM
     Indication: MAST CELL ACTIVATION SYNDROME
     Dosage: ?          QUANTITY:1 AMPOULE;?
     Route: 048
     Dates: start: 20200716, end: 20200804
  5. ZYRTEK [Concomitant]
     Active Substance: CETIRIZINE HYDROCHLORIDE
  6. FLONASE [Concomitant]
     Active Substance: FLUTICASONE PROPIONATE

REACTIONS (3)
  - Diarrhoea [None]
  - Product preparation issue [None]
  - Product substitution issue [None]

NARRATIVE: CASE EVENT DATE: 20200803
